FAERS Safety Report 7950057-6 (Version None)
Quarter: 2011Q4

REPORT INFORMATION
  Report Type: 
  Country: None (occurrence: None)
  Receive Date: 20111130
  Receipt Date: 20111121
  Transmission Date: 20120403
  Serious: Yes (Other)
  Sender: FDA-Public Use
  Company Number: US-ROCHE-1015564

PATIENT
  Sex: Female

DRUGS (6)
  1. LYRICA [Concomitant]
     Route: 065
  2. LUCENTIS [Suspect]
     Indication: VITREOUS FLOATERS
     Route: 065
     Dates: start: 20110320
  3. LUCENTIS [Suspect]
     Indication: VISUAL ACUITY REDUCED
  4. LEVOTHYROXINE SODIUM [Concomitant]
     Route: 065
  5. NITROFURANTOIN MACROCRYSTALLINE [Concomitant]
     Route: 065
  6. ZOLPIDEM [Concomitant]
     Route: 065

REACTIONS (2)
  - VITREOUS FLOATERS [None]
  - VISUAL ACUITY REDUCED [None]
